FAERS Safety Report 8426750-8 (Version None)
Quarter: 2012Q2

REPORT INFORMATION
  Report Type: 
  Country: None (occurrence: None)
  Receive Date: 20120611
  Receipt Date: 20120605
  Transmission Date: 20120825
  Serious: Yes (Life-Threatening, Hospitalization, Disabling)
  Sender: FDA-Public Use
  Company Number: US-BAYER-2012-009314

PATIENT
  Age: 46 Year
  Sex: Female
  Weight: 54.422 kg

DRUGS (25)
  1. YASMIN [Suspect]
     Indication: CONTRACEPTION
     Dosage: UNK
     Route: 048
     Dates: start: 20050926, end: 20081001
  2. YASMIN [Suspect]
     Dosage: UNK
     Dates: start: 20051224, end: 20081001
  3. OXYCODONE HCL AND ACETAMINOPHEN [Concomitant]
     Dosage: 5-325 MG
     Route: 048
     Dates: start: 20080922
  4. PROVENTIL-HFA [Concomitant]
     Dosage: 90 ?G, UNK
     Route: 045
     Dates: start: 20081002
  5. PERCOCET [Concomitant]
  6. PROTONIX [Concomitant]
  7. CYCLOBENZAPRINE [Concomitant]
  8. AMBIEN [Concomitant]
  9. XOPENEX [Concomitant]
  10. OCEAN NASAL [Concomitant]
  11. DIAZEPAM [Concomitant]
  12. LEVAQUIN [Concomitant]
  13. TESSALON [Concomitant]
  14. NASACORT [Concomitant]
  15. IBUPROFEN [Concomitant]
     Dosage: 600 MG, UNK
     Route: 048
     Dates: start: 20080922
  16. CARDIZEM [Concomitant]
  17. FLUOXETINE [Concomitant]
  18. AMITRIPTLINE HYDROCHLORIDE TAB [Concomitant]
  19. METHYLPREDNISOLONE [Concomitant]
  20. ADVAIR DISKUS 100/50 [Concomitant]
  21. PREDNISONE TAB [Concomitant]
  22. COUGH AND COLD PREPARATIONS [Concomitant]
  23. RESPIRATORY SYSTEM [Concomitant]
  24. CLARITIN [Concomitant]
  25. CELEBREX [Concomitant]
     Indication: PAIN

REACTIONS (5)
  - INJURY [None]
  - PULMONARY EMBOLISM [None]
  - PAIN [None]
  - ANXIETY [None]
  - ANHEDONIA [None]
